FAERS Safety Report 4677068-0 (Version None)
Quarter: 2005Q2

REPORT INFORMATION
  Report Type: 
  Country: None (occurrence: None)
  Receive Date: 20050525
  Receipt Date: 20050308
  Transmission Date: 20051028
  Serious: No
  Sender: FDA-Public Use
  Company Number: SU-2005-003306

PATIENT
  Age: 60 Year
  Sex: Female
  Weight: 109.7705 kg

DRUGS (10)
  1. BENICAR [Suspect]
     Dosage: 20 MG BID PO
     Route: 048
     Dates: start: 20050210, end: 20050226
  2. BEXTRA [Concomitant]
  3. CORTISONE [Concomitant]
  4. AMBIEN [Concomitant]
  5. NEXIUM [Concomitant]
  6. NORTRIPTYLINE [Concomitant]
  7. GUAIFEN [Concomitant]
  8. KADIAN [Concomitant]
  9. HYDROCODONE [Concomitant]
  10. LEVOTHYROXINE SODIUM [Concomitant]

REACTIONS (4)
  - BLOOD PRESSURE INCREASED [None]
  - MEDICATION ERROR [None]
  - NERVOUSNESS [None]
  - TREMOR [None]
